FAERS Safety Report 9715828 (Version 2)
Quarter: 2013Q4

REPORT INFORMATION
  Report Type: Spontaneous
  Country: IT (occurrence: IT)
  Receive Date: 20131127
  Receipt Date: 20131203
  Transmission Date: 20140711
  Serious: Yes (Other)
  Sender: FDA-Public Use
  Company Number: IT-009507513-1311ITA008213

PATIENT
  Age: 81 Year
  Sex: Female

DRUGS (10)
  1. SIMVASTATIN [Suspect]
     Dosage: 10 MG, UNK
  2. LOSARTAN POTASSIUM [Suspect]
     Dosage: 50 MG, UNK
  3. AMITRIPTYLINE HYDROCHLORIDE [Suspect]
     Dosage: 20 MG, QD
  4. ASPIRIN [Suspect]
     Dosage: 100 MG, UNK
  5. NITROGLYCERIN [Suspect]
     Dosage: 10 MG, UNK
  6. PAROXETINE [Suspect]
     Dosage: 15 MG, UNK
  7. MK-9355 [Suspect]
     Dosage: 300 MG, UNK
  8. AMLODIPINE [Suspect]
     Dosage: 2.5 MG, UNK
  9. OXYCODONE [Suspect]
     Dosage: 5/2.5 MG TWICE A DAY
  10. DICLOFENAC [Suspect]
     Indication: BACK PAIN
     Dosage: UNK
     Route: 030

REACTIONS (6)
  - Delirium [Recovered/Resolved]
  - Hallucination [Recovered/Resolved]
  - Circadian rhythm sleep disorder [Recovered/Resolved]
  - Anxiety [Recovered/Resolved]
  - Agitation [Unknown]
  - Insomnia [Recovered/Resolved]
